FAERS Safety Report 21379301 (Version 1)
Quarter: 2022Q3

REPORT INFORMATION
  Report Type: Report from Study
  Country: IT (occurrence: IT)
  Receive Date: 20220927
  Receipt Date: 20220927
  Transmission Date: 20221027
  Serious: Yes (Other)
  Sender: FDA-Public Use
  Company Number: IT-UCBSA-2022056371

PATIENT
  Age: 80 Year
  Sex: Male
  Weight: 120 kg

DRUGS (3)
  1. ROTIGOTINE [Suspect]
     Active Substance: ROTIGOTINE
     Indication: Product used for unknown indication
     Dosage: 2MG
     Route: 062
     Dates: start: 202206
  2. ROTIGOTINE [Suspect]
     Active Substance: ROTIGOTINE
     Dosage: 4MG
     Route: 062
     Dates: start: 202208, end: 202209
  3. ROTIGOTINE [Suspect]
     Active Substance: ROTIGOTINE
     Dosage: 2MG
     Route: 062
     Dates: start: 202209

REACTIONS (8)
  - Dysentery [Unknown]
  - Mobility decreased [Not Recovered/Not Resolved]
  - Headache [Unknown]
  - Tremor [Not Recovered/Not Resolved]
  - Weight abnormal [Unknown]
  - Musculoskeletal discomfort [Unknown]
  - Cardiac disorder [Unknown]
  - Intervertebral disc protrusion [Unknown]
